FAERS Safety Report 5489877-9 (Version None)
Quarter: 2007Q4

REPORT INFORMATION
  Report Type: 
  Country: None (occurrence: None)
  Receive Date: 20071018
  Receipt Date: 20071011
  Transmission Date: 20080405
  Serious: Yes (Other)
  Sender: FDA-Public Use
  Company Number: US-BRISTOL-MYERS SQUIBB COMPANY-13938568

PATIENT
  Age: 70 Year
  Sex: Male
  Weight: 108 kg

DRUGS (3)
  1. IXABEPILONE [Suspect]
     Indication: PROSTATE CANCER
     Dosage: TOTAL DOSE ADMINISTERD IN THIS COURSE-414MG. PATIENT RECEIVED 9 INFUSIONS, 46 MG IV/INFUSION.
     Route: 042
     Dates: start: 20070209, end: 20070216
  2. DITROPAN XL [Concomitant]
  3. ROCALTROL [Concomitant]

REACTIONS (1)
  - VENTRICULAR EXTRASYSTOLES [None]
